FAERS Safety Report 14633541 (Version 1)
Quarter: 2018Q1

REPORT INFORMATION
  Report Type: Spontaneous
  Country: GR (occurrence: GR)
  Receive Date: 20180314
  Receipt Date: 20180314
  Transmission Date: 20180509
  Serious: Yes (Other)
  Sender: FDA-Public Use
  Company Number: GR-AMGEN-GRCSP2018031683

PATIENT
  Age: 78 Year
  Sex: Male
  Weight: 70 kg

DRUGS (5)
  1. COAPROVEL [Concomitant]
     Active Substance: HYDROCHLOROTHIAZIDE\IRBESARTAN
     Dosage: 300+25
  2. THYROX [Concomitant]
     Dosage: UNK
  3. PROLIA [Suspect]
     Active Substance: DENOSUMAB
     Indication: OSTEOPOROSIS
     Dosage: 60 MG, Q6MO
     Route: 065
     Dates: start: 2014, end: 20180215
  4. NORVASC [Concomitant]
     Active Substance: AMLODIPINE BESYLATE
     Dosage: UNK
  5. VITAMIN D [Concomitant]
     Active Substance: CHOLECALCIFEROL
     Dosage: 2000 IU, UNK

REACTIONS (8)
  - Back pain [Not Recovered/Not Resolved]
  - Hiatus hernia [Recovered/Resolved]
  - Gastrooesophageal reflux disease [Recovered/Resolved]
  - Oesophagitis [Recovered/Resolved]
  - Paraesthesia [Recovered/Resolved]
  - Constipation [Not Recovered/Not Resolved]
  - Blood urine present [Recovered/Resolved]
  - Abdominal pain upper [Recovered/Resolved]

NARRATIVE: CASE EVENT DATE: 2014
